FAERS Safety Report 17096634 (Version 8)
Quarter: 2020Q4

REPORT INFORMATION
  Report Type: Spontaneous
  Country: US (occurrence: US)
  Receive Date: 20191202
  Receipt Date: 20201221
  Transmission Date: 20210113
  Serious: No
  Sender: FDA-Public Use
  Company Number: US-AMGEN INC.-USASP2019198431

PATIENT

DRUGS (3)
  1. UBRELVY [Concomitant]
     Active Substance: UBROGEPANT
     Dosage: UNK
  2. AIMOVIG [Suspect]
     Active Substance: ERENUMAB-AOOE
     Indication: MIGRAINE
     Dosage: UNK
     Route: 065
     Dates: start: 2018, end: 2018
  3. AJOVY [Concomitant]
     Active Substance: FREMANEZUMAB-VFRM
     Dosage: UNK

REACTIONS (8)
  - Bone pain [Unknown]
  - Fatigue [Unknown]
  - Nausea [Unknown]
  - Alopecia [Unknown]
  - Muscle spasms [Unknown]
  - Adverse drug reaction [Unknown]
  - Drug ineffective [Unknown]
  - Migraine [Unknown]

NARRATIVE: CASE EVENT DATE: 2018
